FAERS Safety Report 10705770 (Version 2)
Quarter: 2015Q1

REPORT INFORMATION
  Report Type: Spontaneous
  Country: JP (occurrence: JP)
  Receive Date: 20150112
  Receipt Date: 20150121
  Transmission Date: 20150721
  Serious: Yes (Other)
  Sender: FDA-Public Use
  Company Number: JP-GLAXOSMITHKLINE-JP2015JPN001561

PATIENT
  Age: 7 Year
  Sex: Female
  Weight: 16 kg

DRUGS (4)
  1. ASVERIN (JAPAN) [Concomitant]
     Dosage: UNK
     Dates: start: 20150107, end: 20150112
  2. RELENZA [Suspect]
     Active Substance: ZANAMIVIR
     Indication: INFLUENZA
     Dosage: 10 MG, BID
     Route: 055
     Dates: start: 20150107, end: 20150112
  3. MUCOSAL [Concomitant]
     Dosage: UNK
     Dates: start: 20150107, end: 20150112
  4. MUCODYNE [Concomitant]
     Active Substance: CARBOCYSTEINE
     Dosage: UNK
     Dates: start: 20150107, end: 20150112

REACTIONS (3)
  - Malaise [Unknown]
  - Somnolence [Unknown]
  - Seizure [Recovered/Resolved]

NARRATIVE: CASE EVENT DATE: 20150108
